FAERS Safety Report 7736317-2 (Version None)
Quarter: 2011Q3

REPORT INFORMATION
  Report Type: 
  Country: None (occurrence: None)
  Receive Date: 20110817
  Receipt Date: 20110128
  Transmission Date: 20111222
  Serious: No
  Sender: FDA-Public Use
  Company Number: 20097447

PATIENT
  Sex: Female

DRUGS (1)
  1. LIORESAL [Suspect]
     Indication: MUSCLE SPASTICITY
     Dosage: MCG, DAILY, INTRATHECAL - SEE B5
     Route: 037

REACTIONS (4)
  - INFECTION [None]
  - PNEUMONIA [None]
  - DRUG INEFFECTIVE [None]
  - WITHDRAWAL SYNDROME [None]
